FAERS Safety Report 5901750-8 (Version None)
Quarter: 2008Q3

REPORT INFORMATION
  Report Type: 
  Country: None (occurrence: None)
  Receive Date: 20080929
  Receipt Date: 20080917
  Transmission Date: 20090109
  Serious: Yes (Hospitalization)
  Sender: FDA-Public Use
  Company Number: AU-BRISTOL-MYERS SQUIBB COMPANY-14333637

PATIENT
  Age: 76 Year
  Sex: Male

DRUGS (10)
  1. ABATACEPT [Suspect]
     Indication: RHEUMATOID ARTHRITIS
     Route: 058
     Dates: start: 20080521, end: 20080903
  2. PREDNISOLONE [Concomitant]
     Indication: RHEUMATOID ARTHRITIS
     Dates: start: 19900101
  3. METHOTREXATE [Concomitant]
     Dates: start: 20070803
  4. FOLIC ACID [Concomitant]
     Dates: start: 20070803
  5. DIABEX [Concomitant]
     Dates: start: 20080527
  6. LASIX [Concomitant]
     Dates: start: 20080301
  7. NEXIUM [Concomitant]
     Dates: start: 20080318
  8. SLOW-K [Concomitant]
     Dates: start: 20080301
  9. ORUDIS [Concomitant]
     Dates: start: 19900101
  10. DEXTROPROPOXYPHENE HCL + APAP [Concomitant]
     Dates: start: 19980101

REACTIONS (1)
  - PNEUMOCYSTIS JIROVECI PNEUMONIA [None]
